FAERS Safety Report 13595886 (Version 2)
Quarter: 2017Q3

REPORT INFORMATION
  Report Type: Spontaneous
  Country: US (occurrence: US)
  Receive Date: 20170531
  Receipt Date: 20170725
  Transmission Date: 20171127
  Serious: No
  Sender: FDA-Public Use
  Company Number: US-JNJFOC-20170505856

PATIENT
  Age: 6 Week
  Sex: Female
  Weight: 4.54 kg

DRUGS (1)
  1. CHILDRENS TYLENOL [Suspect]
     Active Substance: ACETAMINOPHEN
     Indication: TEETHING
     Dosage: 1/4 TEASPOON, AS NEEDED
     Route: 048

REACTIONS (1)
  - Product contamination physical [Unknown]
